FAERS Safety Report 13864048 (Version 1)
Quarter: 2017Q3

REPORT INFORMATION
  Report Type: Spontaneous
  Country: US (occurrence: US)
  Receive Date: 20170814
  Receipt Date: 20170814
  Transmission Date: 20171127
  Serious: No
  Sender: FDA-Public Use
  Company Number: US-BAYER-2017-154638

PATIENT
  Age: 76 Year
  Sex: Female
  Weight: 64 kg

DRUGS (2)
  1. ALEVE [Suspect]
     Active Substance: NAPROXEN SODIUM
     Indication: ARTHRALGIA
     Dosage: 2 DF, BID 1 IN MORNING 1 IN EVENING
     Route: 048
     Dates: start: 20170809
  2. 20/20 EYE DROP [Concomitant]
     Dosage: UNK

REACTIONS (1)
  - Drug ineffective [Unknown]
